FAERS Safety Report 7325634-6 (Version None)
Quarter: 2011Q1

REPORT INFORMATION
  Report Type: 
  Country: None (occurrence: None)
  Receive Date: 20110302
  Receipt Date: 20110223
  Transmission Date: 20110831
  Serious: Yes (Hospitalization, Other)
  Sender: FDA-Public Use
  Company Number: NL-PFIZER INC-2010158360

PATIENT
  Sex: Female

DRUGS (3)
  1. LEPONEX ^NOVARTIS^ [Suspect]
     Dosage: 50 MG, 1X/DAY
     Dates: start: 20100601, end: 20100601
  2. LEPONEX ^NOVARTIS^ [Suspect]
     Dosage: 25 MG, 1X/DAY
     Dates: end: 20100601
  3. EFFEXOR XR [Suspect]
     Dosage: 37.5 MG, 2X/DAY
     Dates: end: 20100601

REACTIONS (12)
  - CONVULSION [None]
  - TRANSIENT ISCHAEMIC ATTACK [None]
  - OEDEMA [None]
  - PELVIC PAIN [None]
  - TRISMUS [None]
  - PAIN IN EXTREMITY [None]
  - EYE MOVEMENT DISORDER [None]
  - GAIT DISTURBANCE [None]
  - MUSCLE SPASMS [None]
  - DYSTONIA [None]
  - MUSCLE SPASTICITY [None]
  - HEAD TITUBATION [None]
